FAERS Safety Report 24097222 (Version 2)
Quarter: 2024Q4

REPORT INFORMATION
  Report Type: Spontaneous
  Country: CA (occurrence: CA)
  Receive Date: 20240716
  Receipt Date: 20241029
  Transmission Date: 20250114
  Serious: No
  Sender: SANOFI AVENTIS
  Company Number: CA-SANOFI-02106126

PATIENT
  Sex: Male

DRUGS (1)
  1. LOVENOX [Suspect]
     Active Substance: ENOXAPARIN SODIUM
     Indication: Thrombosis
     Dosage: UNK
     Route: 065

REACTIONS (1)
  - No adverse event [Unknown]
